FAERS Safety Report 19186053 (Version 3)
Quarter: 2021Q2

REPORT INFORMATION
  Report Type: Report from Study
  Country: BR (occurrence: BR)
  Receive Date: 20210427
  Receipt Date: 20210616
  Transmission Date: 20210717
  Serious: Yes (Other)
  Sender: FDA-Public Use
  Company Number: NVSC2021BR092511

PATIENT
  Sex: Female
  Weight: 70 kg

DRUGS (6)
  1. ARTIFLEX [Concomitant]
     Indication: COLLAGEN DISORDER
     Dosage: UNK, QD (3 YEARS AGO)
     Route: 048
  2. GALVUS MET [Suspect]
     Active Substance: METFORMIN HYDROCHLORIDE\VILDAGLIPTIN
     Indication: GLUCOSE TOLERANCE IMPAIRED
     Dosage: 1 DF, QD (STARTED ABOUT 2 TO 3 YEARS AGO)
     Route: 048
  3. LIPITOR [Concomitant]
     Active Substance: ATORVASTATIN CALCIUM
     Indication: BLOOD CHOLESTEROL INCREASED
     Dosage: 1 DF, QW3 (STARTED MANY YEARS AGO)
     Route: 048
  4. HYLO GEL [Concomitant]
     Indication: EYE DISORDER
     Dosage: UNK, QID (15 DAYS AGO)
     Route: 047
  5. VITAMIN B12 [Concomitant]
     Active Substance: CYANOCOBALAMIN
     Indication: VITAMIN B12 DEFICIENCY
     Dosage: UNK, BIW (3 YEARS AGO)
     Route: 048
  6. ADDERALL [Concomitant]
     Active Substance: AMPHETAMINE ASPARTATE\AMPHETAMINE SULFATE\DEXTROAMPHETAMINE SACCHARATE\DEXTROAMPHETAMINE SULFATE
     Indication: VITAMIN D DEFICIENCY
     Dosage: UNK, QMO (MANY YEARS AGO)
     Route: 048

REACTIONS (6)
  - Cataract [Recovered/Resolved]
  - Fumbling [Unknown]
  - Nervousness [Unknown]
  - Product prescribing error [Not Recovered/Not Resolved]
  - Hypoacusis [Unknown]
  - Visual impairment [Unknown]

NARRATIVE: CASE EVENT DATE: 2019
